FAERS Safety Report 21579272 (Version 1)
Quarter: 2022Q4

REPORT INFORMATION
  Report Type: Spontaneous
  Country: US (occurrence: None)
  Receive Date: 20221110
  Receipt Date: 20221110
  Transmission Date: 20230112
  Serious: Yes (Other)
  Sender: FDA-Public Use
  Company Number: 2022A368135

PATIENT
  Age: 58 Year
  Sex: Female

DRUGS (1)
  1. BENRALIZUMAB [Suspect]
     Active Substance: BENRALIZUMAB
     Indication: Asthma
     Dosage: 3 DOSES
     Route: 058

REACTIONS (3)
  - Thyroid stimulating immunoglobulin increased [Recovered/Resolved]
  - Malignant neoplasm progression [Unknown]
  - Endocrine ophthalmopathy [Recovering/Resolving]
